FAERS Safety Report 15861343 (Version 2)
Quarter: 2019Q1

REPORT INFORMATION
  Report Type: Spontaneous
  Country: BR (occurrence: BR)
  Receive Date: 20190124
  Receipt Date: 20190125
  Transmission Date: 20190417
  Serious: Yes (Other)
  Sender: FDA-Public Use
  Company Number: BR-ROCHE-2220220

PATIENT
  Sex: Female

DRUGS (2)
  1. VALIUM [Suspect]
     Active Substance: DIAZEPAM
     Indication: ANXIETY
     Route: 065
  2. HIXIZINE [Suspect]
     Active Substance: HYDROXYZINE HYDROCHLORIDE
     Indication: PRODUCT USED FOR UNKNOWN INDICATION
     Route: 065

REACTIONS (10)
  - Insomnia [Recovering/Resolving]
  - Dyspnoea [Recovered/Resolved]
  - Drug dependence [Unknown]
  - Diabetes mellitus [Not Recovered/Not Resolved]
  - Irritability [Unknown]
  - Somnolence [Not Recovered/Not Resolved]
  - Adenoma benign [Recovered/Resolved]
  - Hypertension [Recovered/Resolved]
  - Migraine [Recovering/Resolving]
  - Hypersensitivity [Not Recovered/Not Resolved]

NARRATIVE: CASE EVENT DATE: 2003
